FAERS Safety Report 16409145 (Version 1)
Quarter: 2019Q3

REPORT INFORMATION
  Report Type: Spontaneous
  Country: US (occurrence: US)
  Receive Date: 20190607
  Receipt Date: 20190607
  Transmission Date: 20191004
  Serious: Yes (Hospitalization, Disabling)
  Sender: FDA-Public Use
  Company Number: None

PATIENT
  Age: 37 Year
  Sex: Female
  Weight: 61.23 kg

DRUGS (4)
  1. FIBER [Concomitant]
     Active Substance: PSYLLIUM HUSK
  2. MIRENA [Suspect]
     Active Substance: LEVONORGESTREL
  3. ORAL BIRTH CONTROL PILL (LEVON) [Concomitant]
  4. MAGNESIUM [Concomitant]
     Active Substance: MAGNESIUM

REACTIONS (8)
  - Menorrhagia [None]
  - Bacterial vaginosis [None]
  - Complication of device removal [None]
  - Urinary tract infection [None]
  - Post procedural haemorrhage [None]
  - Uterine leiomyoma [None]
  - Vaginal discharge [None]
  - Dyspareunia [None]
